FAERS Safety Report 18233593 (Version 1)
Quarter: 2020Q3

REPORT INFORMATION
  Report Type: Spontaneous
  Country: CA (occurrence: CA)
  Receive Date: 20200904
  Receipt Date: 20200904
  Transmission Date: 20201103
  Serious: Yes (Hospitalization, Other)
  Sender: FDA-Public Use
  Company Number: CA-TEVA-2020-CA-1823019

PATIENT
  Age: 28 Year
  Sex: Female

DRUGS (4)
  1. OLANZAPINE. [Suspect]
     Active Substance: OLANZAPINE
     Indication: PSYCHOTIC DISORDER
     Dosage: 40 MILLIGRAM DAILY;
     Route: 065
  2. CLONAZEPAM. [Concomitant]
     Active Substance: CLONAZEPAM
  3. VALPROIC ACID. [Concomitant]
     Active Substance: VALPROIC ACID
  4. OLANZAPINE. [Suspect]
     Active Substance: OLANZAPINE
     Indication: MANIA
     Dosage: 35 MILLIGRAM DAILY;
     Route: 065

REACTIONS (4)
  - Diabetic ketoacidosis [Unknown]
  - Hyperglycaemia [Unknown]
  - Ketosis-prone diabetes mellitus [Unknown]
  - Weight increased [Unknown]
